FAERS Safety Report 11711824 (Version 1)
Quarter: 2015Q4

REPORT INFORMATION
  Report Type: Spontaneous
  Country: US (occurrence: US)
  Receive Date: 20151104
  Receipt Date: 20151104
  Transmission Date: 20160304
  Serious: No
  Sender: FDA-Public Use
  Company Number: US-ELI_LILLY_AND_COMPANY-US201105001110

PATIENT
  Age: 58 Year
  Sex: Female

DRUGS (2)
  1. FORTEO [Suspect]
     Active Substance: TERIPARATIDE
     Dosage: 20 UG, DAILY (1/D)
  2. FORTEO [Suspect]
     Active Substance: TERIPARATIDE
     Indication: OSTEOPOROSIS
     Dosage: 20 UG, DAILY (1/D)
     Dates: start: 20110425

REACTIONS (9)
  - Skin odour abnormal [Unknown]
  - Scab [Unknown]
  - Thirst [Unknown]
  - Rash pruritic [Unknown]
  - Skin irritation [Unknown]
  - Skin reaction [Unknown]
  - Breath odour [Unknown]
  - Dry skin [Unknown]
  - Skin discomfort [Unknown]

NARRATIVE: CASE EVENT DATE: 201105
